FAERS Safety Report 20036672 (Version 1)
Quarter: 2021Q4

REPORT INFORMATION
  Report Type: Spontaneous
  Country: CN (occurrence: None)
  Receive Date: 20211105
  Receipt Date: 20211105
  Transmission Date: 20220303
  Serious: Yes (Other)
  Sender: FDA-Public Use
  Company Number: CN-ROCHE-2945841

PATIENT
  Age: 69 Year
  Sex: Male
  Weight: 71 kg

DRUGS (21)
  1. MABTHERA [Suspect]
     Active Substance: RITUXIMAB
     Indication: B-cell lymphoma stage II
     Dosage: R-CHOP
     Route: 065
     Dates: start: 201205, end: 201209
  2. MABTHERA [Suspect]
     Active Substance: RITUXIMAB
     Dosage: R-GC
     Route: 065
     Dates: start: 201907, end: 201910
  3. MABTHERA [Suspect]
     Active Substance: RITUXIMAB
     Dosage: R2
     Route: 065
     Dates: start: 201911
  4. GAZYVA [Suspect]
     Active Substance: OBINUTUZUMAB
     Indication: Follicular lymphoma
     Dosage: DAY1,8,15
     Route: 042
     Dates: start: 20210902
  5. GAZYVA [Suspect]
     Active Substance: OBINUTUZUMAB
     Dosage: DAY1
     Route: 042
     Dates: start: 20211015
  6. CYCLOPHOSPHAMIDE [Concomitant]
     Active Substance: CYCLOPHOSPHAMIDE
     Indication: B-cell lymphoma stage II
     Dosage: R-CHOP
     Dates: start: 201205, end: 201209
  7. CYCLOPHOSPHAMIDE [Concomitant]
     Active Substance: CYCLOPHOSPHAMIDE
     Dosage: CHOP
     Dates: start: 201511
  8. DOXORUBICIN [Concomitant]
     Active Substance: DOXORUBICIN
     Indication: B-cell lymphoma stage II
     Dosage: R-CHOP
     Dates: start: 201205, end: 201209
  9. DOXORUBICIN [Concomitant]
     Active Substance: DOXORUBICIN
     Dosage: CHOP
     Dates: start: 201511
  10. VINCRISTINE [Concomitant]
     Active Substance: VINCRISTINE
     Indication: B-cell lymphoma stage II
     Dosage: R-CHOP
     Dates: start: 201205, end: 201209
  11. VINCRISTINE [Concomitant]
     Active Substance: VINCRISTINE
     Dosage: CHOP
     Dates: start: 201511
  12. PREDNISONE [Concomitant]
     Active Substance: PREDNISONE
     Indication: B-cell lymphoma stage II
     Dosage: R-CHOP
     Dates: start: 201205, end: 201209
  13. PREDNISONE [Concomitant]
     Active Substance: PREDNISONE
     Dosage: CHOP
     Dates: start: 201511
  14. IFOSFAMIDE [Concomitant]
     Active Substance: IFOSFAMIDE
     Indication: B-cell lymphoma stage II
     Dosage: DTCE
     Dates: start: 201907, end: 201910
  15. ETOPOSIDE [Concomitant]
     Active Substance: ETOPOSIDE
     Indication: B-cell lymphoma stage II
     Dosage: DTCE
     Dates: start: 201907, end: 201910
  16. CISPLATIN [Concomitant]
     Active Substance: CISPLATIN
     Indication: B-cell lymphoma stage II
     Dosage: DTCE
     Dates: start: 201907, end: 201910
  17. CISPLATIN [Concomitant]
     Active Substance: CISPLATIN
     Dosage: R-GC
     Dates: start: 201907, end: 201910
  18. DEXAMETHASONE [Concomitant]
     Active Substance: DEXAMETHASONE
     Indication: B-cell lymphoma stage II
     Dosage: DTCE
     Dates: start: 201907, end: 201910
  19. GEMCITABINE [Concomitant]
     Active Substance: GEMCITABINE
     Indication: B-cell lymphoma stage II
     Dosage: R-GC
     Dates: start: 201907, end: 201910
  20. LENALIDOMIDE [Concomitant]
     Active Substance: LENALIDOMIDE
     Indication: B-cell lymphoma stage II
     Dosage: R2
     Dates: start: 201911, end: 202001
  21. BENDAMUSTINE [Concomitant]
     Active Substance: BENDAMUSTINE
     Indication: Follicular lymphoma
     Dosage: 02-SEP-2021,15-OCT-2021

REACTIONS (1)
  - Myelosuppression [Unknown]
